FAERS Safety Report 8379063-7 (Version None)
Quarter: 2012Q2

REPORT INFORMATION
  Report Type: 
  Country: None (occurrence: None)
  Receive Date: 20120522
  Receipt Date: 20120522
  Transmission Date: 20120825
  Serious: Yes (Other)
  Sender: FDA-Public Use
  Company Number: None

PATIENT
  Sex: Male

DRUGS (2)
  1. PEGASYS [Suspect]
     Indication: HEPATITIS C
     Dosage: 180MCG QW SQ
     Route: 058
     Dates: start: 20120216
  2. RIBAVIRIN [Suspect]
     Indication: HEPATITIS C
     Dosage: 400MG BID ORAL
     Route: 048
     Dates: start: 20120216

REACTIONS (1)
  - EMPHYSEMA [None]
